FAERS Safety Report 16004975 (Version 1)
Quarter: 2019Q1

REPORT INFORMATION
  Report Type: Report from Study
  Country: BR (occurrence: BR)
  Receive Date: 20190226
  Receipt Date: 20190226
  Transmission Date: 20190418
  Serious: Yes (Hospitalization, Other)
  Sender: FDA-Public Use
  Company Number: PHHY2019BR043037

PATIENT
  Sex: Male

DRUGS (1)
  1. GLIVEC [Suspect]
     Active Substance: IMATINIB MESYLATE
     Indication: CHRONIC MYELOID LEUKAEMIA
     Route: 065

REACTIONS (5)
  - Chronic myeloid leukaemia [Unknown]
  - Basophil count abnormal [Unknown]
  - Therapeutic response decreased [Unknown]
  - Abdominal infection [Unknown]
  - Eosinophilia [Unknown]

NARRATIVE: CASE EVENT DATE: 20190114
